FAERS Safety Report 5281125-8 (Version None)
Quarter: 2007Q1

REPORT INFORMATION
  Report Type: 
  Country: None (occurrence: None)
  Receive Date: 20070323
  Receipt Date: 20070309
  Transmission Date: 20070707
  Serious: Yes (Other)
  Sender: FDA-Public Use
  Company Number: GXKR2007GB02382

PATIENT
  Age: 75 Year
  Sex: Male

DRUGS (4)
  1. GABAPENTIN [Suspect]
     Indication: NEURALGIA
     Dosage: 200 MG, TID, UNK
  2. CARBIDOPA (CARBIDOPA) [Concomitant]
  3. ENTACAPONE (ENTACAPONE) [Concomitant]
  4. LEVODOPA (LEVODOPA) [Concomitant]

REACTIONS (1)
  - CHOREOATHETOSIS [None]
